FAERS Safety Report 9095617 (Version 1)
Quarter: 2013Q1

REPORT INFORMATION
  Report Type: Spontaneous
  Country: US (occurrence: None)
  Receive Date: 20130122
  Receipt Date: 20130122
  Transmission Date: 20140127
  Serious: No
  Sender: FDA-Public Use
  Company Number: 2013-00025

PATIENT
  Age: 59 Year
  Sex: Male
  Weight: 105.24 kg

DRUGS (4)
  1. UNSPECIFIED ZICAM PRODUCT [Concomitant]
     Dates: start: 201209
  2. DIOVAN [Concomitant]
  3. HYDROCHLOROTHIAZIDE [Concomitant]
  4. TERAZOSIN [Concomitant]

REACTIONS (2)
  - Anosmia [None]
  - Ageusia [None]
